FAERS Safety Report 11062291 (Version 1)
Quarter: 2015Q2

REPORT INFORMATION
  Report Type: Spontaneous
  Country: US (occurrence: US)
  Receive Date: 20150424
  Receipt Date: 20150424
  Transmission Date: 20150821
  Serious: No
  Sender: FDA-Public Use
  Company Number: US-BAYER-2015-122802

PATIENT
  Sex: Male

DRUGS (1)
  1. CLIMARA [Suspect]
     Active Substance: ESTRADIOL
     Indication: PROSTATE CANCER
     Dosage: 0.1 MG, QD
     Route: 062
     Dates: start: 2014

REACTIONS (4)
  - Product adhesion issue [None]
  - Product colour issue [None]
  - Prostatic specific antigen abnormal [None]
  - Product use issue [None]
